FAERS Safety Report 9383351 (Version 1)
Quarter: 2013Q3

REPORT INFORMATION
  Report Type: Spontaneous
  Country: US (occurrence: US)
  Receive Date: 20130704
  Receipt Date: 20130704
  Transmission Date: 20140515
  Serious: Yes (Other)
  Sender: FDA-Public Use
  Company Number: US-MERCK-1306USA012791

PATIENT
  Sex: 0

DRUGS (3)
  1. JANUVIA [Suspect]
     Indication: TYPE 2 DIABETES MELLITUS
     Dosage: UNK, FOR 26 OR 52 WEEKS
     Route: 048
  2. UNSPECIFIED INGREDIENT [Suspect]
     Indication: TYPE 2 DIABETES MELLITUS
     Dosage: UNK, FOR 26 OR 52 WEEKS OR LESS
  3. PLACEBO [Suspect]
     Indication: TYPE 2 DIABETES MELLITUS

REACTIONS (5)
  - Neoplasm malignant [Unknown]
  - Pancreatitis [Unknown]
  - Weight decreased [Unknown]
  - Nausea [Unknown]
  - Vomiting [Unknown]
